FAERS Safety Report 7934024-4 (Version None)
Quarter: 2011Q4

REPORT INFORMATION
  Report Type: 
  Country: None (occurrence: None)
  Receive Date: 20111122
  Receipt Date: 20111110
  Transmission Date: 20120403
  Serious: Yes (Hospitalization)
  Sender: FDA-Public Use
  Company Number: FR-ELI_LILLY_AND_COMPANY-FR201111003217

PATIENT
  Sex: Male

DRUGS (9)
  1. DEPAKOTE [Concomitant]
     Dosage: 2 G, QD
     Route: 065
     Dates: end: 20110801
  2. ZOLPIDEM TARTRATE [Concomitant]
     Dosage: UNK, UNKNOWN
     Route: 065
     Dates: end: 20110830
  3. TERCIAN [Concomitant]
     Dosage: UNK, UNKNOWN
     Route: 065
     Dates: start: 20110831
  4. CLONAZEPAM [Concomitant]
     Dosage: UNK, UNKNOWN
     Route: 065
     Dates: end: 20110830
  5. DEPAKOTE [Concomitant]
     Dosage: UNK, UNKNOWN
     Route: 065
     Dates: start: 20110801
  6. TRIMEPRAZINE TARTRATE [Concomitant]
     Dosage: UNK, UNKNOWN
     Route: 065
     Dates: end: 20110830
  7. ZYPREXA [Suspect]
     Indication: BIPOLAR I DISORDER
     Dosage: 15 MG, QD
     Route: 065
     Dates: end: 20110801
  8. ZYPREXA [Suspect]
     Dosage: UNK, UNKNOWN
     Route: 065
     Dates: start: 20110801
  9. TERCIAN [Concomitant]
     Dosage: UNK, UNKNOWN
     Route: 065
     Dates: end: 20110830

REACTIONS (5)
  - AGITATION [None]
  - NEGATIVISM [None]
  - COMMUNICATION DISORDER [None]
  - SOMNOLENCE [None]
  - PARKINSONIAN GAIT [None]
